FAERS Safety Report 9529430 (Version 1)
Quarter: 2013Q3

REPORT INFORMATION
  Report Type: Spontaneous
  Country: US (occurrence: US)
  Receive Date: 20130917
  Receipt Date: 20130917
  Transmission Date: 20140515
  Serious: Yes (Other)
  Sender: FDA-Public Use
  Company Number: US-PFIZER INC-2013265490

PATIENT
  Age: 36 Year
  Sex: Female
  Weight: 82.1 kg

DRUGS (5)
  1. PREMARIN [Suspect]
     Indication: VULVOVAGINAL DRYNESS
     Dosage: UNK
     Route: 067
  2. PREMARIN [Suspect]
     Indication: VULVOVAGINAL DRYNESS
     Dosage: UNK
     Dates: start: 1972, end: 1975
  3. PROGESTERONE [Suspect]
     Indication: VULVOVAGINAL DRYNESS
     Dosage: UNK
  4. ESTROGEL [Suspect]
     Indication: VULVOVAGINAL DRYNESS
     Dosage: UNK
  5. CLONAZEPAM [Concomitant]
     Indication: ANXIETY
     Dosage: 2 MG, AS NEEDED

REACTIONS (3)
  - Uterine disorder [Unknown]
  - Palpitations [Recovered/Resolved]
  - Drug ineffective [Unknown]
